FAERS Safety Report 7736839-4 (Version None)
Quarter: 2011Q3

REPORT INFORMATION
  Report Type: 
  Country: None (occurrence: None)
  Receive Date: 20110902
  Receipt Date: 20110822
  Transmission Date: 20111222
  Serious: Yes (Other)
  Sender: FDA-Public Use
  Company Number: ACO_26358_2011

PATIENT
  Age: 71 Year
  Sex: Female
  Weight: 74.8 kg

DRUGS (13)
  1. VITAMIN B-12 [Concomitant]
  2. VITAMIN D NOS (VITAMIN D NOS) [Concomitant]
  3. PRILOSEC [Concomitant]
  4. GLUCOSAMINE (GLUCOSAMINE) [Concomitant]
  5. SYNTHROID [Concomitant]
  6. SAVELLA [Concomitant]
  7. OXYBUTYNIN [Concomitant]
  8. ASPIRIN [Concomitant]
  9. AMANTADINE HCL [Concomitant]
  10. AMPYRA [Suspect]
     Indication: GAIT DISTURBANCE
     Dosage: 10 MG, QD, ORAL, 10 MG, Q 12 HRS, ORAL
     Route: 048
     Dates: start: 20110721, end: 20110701
  11. AMPYRA [Suspect]
     Indication: GAIT DISTURBANCE
     Dosage: 10 MG, QD, ORAL, 10 MG, Q 12 HRS, ORAL
     Route: 048
     Dates: start: 20110701, end: 20110701
  12. CALCIUM CARBONATE [Concomitant]
  13. ESTRADIOL [Concomitant]

REACTIONS (3)
  - AGGRESSION [None]
  - INAPPROPRIATE SCHEDULE OF DRUG ADMINISTRATION [None]
  - CONVULSION [None]
